FAERS Safety Report 5374033-5 (Version None)
Quarter: 2007Q2

REPORT INFORMATION
  Report Type: 
  Country: None (occurrence: None)
  Receive Date: 20070628
  Receipt Date: 20070618
  Transmission Date: 20071010
  Serious: Yes (Hospitalization)
  Sender: FDA-Public Use
  Company Number: FR-ABBOTT-07P-056-0369507-00

PATIENT
  Sex: Female
  Weight: 68 kg

DRUGS (21)
  1. SEVORANE LIQUID FOR INHALATION [Suspect]
     Indication: ANAESTHESIA
     Route: 055
     Dates: start: 20070403, end: 20070403
  2. FORENE LIQUID FOR INHALATION [Suspect]
     Indication: ANAESTHESIA
     Route: 055
     Dates: start: 20070322, end: 20070322
  3. PARACETAMOL [Suspect]
     Indication: DRUG USE FOR UNKNOWN INDICATION
     Route: 048
     Dates: start: 20070403, end: 20070403
  4. PARACETAMOL [Suspect]
     Route: 042
     Dates: start: 20070403, end: 20070403
  5. PARACETAMOL [Suspect]
     Route: 048
     Dates: start: 20070403, end: 20070410
  6. PARACETAMOL [Suspect]
     Route: 030
     Dates: start: 20070404, end: 20070410
  7. INIPOMP [Suspect]
     Indication: DRUG USE FOR UNKNOWN INDICATION
     Route: 048
     Dates: start: 20070405, end: 20070410
  8. NEFOPAM HYDROCHLORIDE [Suspect]
     Indication: DRUG USE FOR UNKNOWN INDICATION
     Route: 048
  9. HYDROXYZINE [Suspect]
     Indication: DRUG USE FOR UNKNOWN INDICATION
     Route: 048
     Dates: start: 20070403, end: 20070412
  10. PROPOFOL [Concomitant]
     Indication: ANAESTHESIA
     Dates: start: 20070322, end: 20070322
  11. PROPOFOL [Concomitant]
     Dates: start: 20070403, end: 20070403
  12. MIDAZOLAM HYDROCHLORIDE [Concomitant]
     Indication: ANAESTHESIA
     Dates: start: 20070322, end: 20070322
  13. SUFENTANIL CITRATE [Concomitant]
     Indication: ANAESTHESIA
     Dates: start: 20070322, end: 20070322
  14. SUFENTANIL CITRATE [Concomitant]
     Dates: start: 20070403, end: 20070403
  15. ATRACURIUM BESYLATE [Concomitant]
     Indication: ANAESTHESIA
     Dates: start: 20070322, end: 20070322
  16. KETAMINE HYDROCHLORIDE [Concomitant]
     Indication: ANAESTHESIA
     Dates: start: 20070322, end: 20070322
  17. HEPARIN-FRACTION, SODIUM SALT [Concomitant]
     Indication: PROPHYLAXIS
     Route: 058
  18. ETORICOXIB [Concomitant]
     Indication: RHEUMATOID ARTHRITIS
     Dates: start: 20010101
  19. ZOPICLONE [Concomitant]
     Indication: INSOMNIA
     Dates: start: 20070404, end: 20070412
  20. GAVISCON [Concomitant]
     Indication: DRUG USE FOR UNKNOWN INDICATION
  21. CALCIUM CARBONATE [Concomitant]
     Indication: DRUG USE FOR UNKNOWN INDICATION

REACTIONS (7)
  - ABDOMINAL PAIN UPPER [None]
  - ALANINE AMINOTRANSFERASE INCREASED [None]
  - ASPARTATE AMINOTRANSFERASE INCREASED [None]
  - BLOOD LACTATE DEHYDROGENASE INCREASED [None]
  - CYTOLYTIC HEPATITIS [None]
  - GAMMA-GLUTAMYLTRANSFERASE INCREASED [None]
  - VOMITING [None]
